FAERS Safety Report 5398328-4 (Version None)
Quarter: 2007Q3

REPORT INFORMATION
  Report Type: 
  Country: None (occurrence: None)
  Receive Date: 20070724
  Receipt Date: 20070710
  Transmission Date: 20080115
  Serious: Yes (Other)
  Sender: FDA-Public Use
  Company Number: 235713K07USA

PATIENT
  Age: 55 Year
  Sex: Female

DRUGS (8)
  1. REBIF [Suspect]
     Indication: MULTIPLE SCLEROSIS
     Dosage: 44 MCG, 3 IN 1 WEEKS, SUBCUTANEOUS
     Route: 058
     Dates: start: 20051122
  2. KEPPRA [Concomitant]
  3. OXYCODONE HCL [Concomitant]
  4. AMITRIPTYLINE HCL [Concomitant]
  5. AMANTADINE HCL [Concomitant]
  6. LIPITOR [Concomitant]
  7. BACLOFEN [Concomitant]
  8. ALEVE [Concomitant]

REACTIONS (1)
  - CARDIOMYOPATHY [None]
